FAERS Safety Report 8710537 (Version 2)
Quarter: 2013Q1

REPORT INFORMATION
  Report Type: Spontaneous
  Country: US (occurrence: US)
  Receive Date: 20120807
  Receipt Date: 20130116
  Transmission Date: 20140127
  Serious: Yes (Hospitalization)
  Sender: FDA-Public Use
  Company Number: US-009507513-1208USA001200

PATIENT
  Age: 17 Year
  Sex: Female
  Weight: 63.49 kg

DRUGS (1)
  1. IMPLANON [Suspect]
     Indication: CONTRACEPTION
     Dosage: UNK
     Route: 059
     Dates: start: 20110818

REACTIONS (5)
  - Panic attack [Unknown]
  - Menstruation irregular [Unknown]
  - Weight increased [Unknown]
  - Chest pain [None]
  - Paraesthesia [None]
